FAERS Safety Report 18791949 (Version 3)
Quarter: 2021Q1

REPORT INFORMATION
  Report Type: Report from Study
  Country: None (occurrence: GR)
  Receive Date: 20210126
  Receipt Date: 20210203
  Transmission Date: 20210419
  Serious: Yes (Hospitalization)
  Sender: FDA-Public Use
  Company Number: GR-ABBVIE-21K-066-3716942-00

PATIENT
  Age: 76 Year
  Sex: Male
  Weight: 75 kg

DRUGS (7)
  1. TRITTICO [Concomitant]
     Active Substance: TRAZODONE HYDROCHLORIDE
     Indication: PRODUCT USED FOR UNKNOWN INDICATION
     Dosage: TRAZODONE
     Route: 048
  2. CIRCADIN [Concomitant]
     Active Substance: MELATONIN
     Indication: PRODUCT USED FOR UNKNOWN INDICATION
     Dosage: MELATONIN
     Route: 048
  3. DUODOPA [Suspect]
     Active Substance: CARBIDOPA\LEVODOPA
     Indication: PARKINSON^S DISEASE
     Dosage: MORNING DOSE: 8.0 ML; CONTINUOUS RATE: 5.0 ML/H; EXTRA DOSE: 1.5 ML (24H ADMINISTRATION)
     Route: 050
     Dates: start: 20191030
  4. DUODOPA [Suspect]
     Active Substance: CARBIDOPA\LEVODOPA
     Dosage: MORNING DOSE: 8.0 ML; CONTINUOUS RATE: 3.8 ML/H; EXTRA DOSE:1.5 ML (24H ADMINISTRATION)
     Route: 050
  5. EMCONCOR [Concomitant]
     Active Substance: BISOPROLOL FUMARATE
     Indication: PRODUCT USED FOR UNKNOWN INDICATION
     Dosage: BISOPROLOL?0.25 OF UNKNOWN UNIT DOSE, ONCE DAILY
     Route: 048
  6. RACTILEN [Concomitant]
     Indication: PRODUCT USED FOR UNKNOWN INDICATION
     Dosage: RASAGILINE
     Route: 048
  7. CLONOTRIL [Concomitant]
     Active Substance: CLONAZEPAM
     Indication: PRODUCT USED FOR UNKNOWN INDICATION
     Dosage: CLONAZEPAM
     Route: 048

REACTIONS (12)
  - Bedridden [Unknown]
  - Muscle twitching [Unknown]
  - Tremor [Unknown]
  - Hallucination [Not Recovered/Not Resolved]
  - Dementia [Unknown]
  - Weight decreased [Unknown]
  - Dementia Alzheimer^s type [Unknown]
  - Mobility decreased [Not Recovered/Not Resolved]
  - Restlessness [Not Recovered/Not Resolved]
  - Food refusal [Not Recovered/Not Resolved]
  - Malaise [Unknown]
  - Drug ineffective [Unknown]

NARRATIVE: CASE EVENT DATE: 202009
